FAERS Safety Report 22989755 (Version 2)
Quarter: 2024Q1

REPORT INFORMATION
  Report Type: Report from Study
  Country: US (occurrence: US)
  Receive Date: 20230927
  Receipt Date: 20240215
  Transmission Date: 20240409
  Serious: No
  Sender: FDA-Public Use
  Company Number: US-002147023-NVSC2023US207712

PATIENT
  Age: 71 Year
  Sex: Female

DRUGS (2)
  1. ENTRESTO [Suspect]
     Active Substance: SACUBITRIL\VALSARTAN
     Indication: Product used for unknown indication
     Dosage: 1 DOSAGE FORM, QD
     Route: 065
  2. ENTRESTO [Suspect]
     Active Substance: SACUBITRIL\VALSARTAN
     Dosage: 0.5 DOSAGE FORM, QD
     Route: 065

REACTIONS (4)
  - COVID-19 [Recovered/Resolved]
  - Wrong technique in product usage process [Unknown]
  - Product dose omission issue [Unknown]
  - Product use issue [Unknown]
